FAERS Safety Report 19670350 (Version 1)
Quarter: 2021Q3

REPORT INFORMATION
  Report Type: Spontaneous
  Country: US (occurrence: US)
  Receive Date: 20210806
  Receipt Date: 20210806
  Transmission Date: 20211014
  Serious: Yes (Other)
  Sender: FDA-Public Use
  Company Number: US-SAOL THERAPEUTICS-2021SAO00164

PATIENT
  Age: 16 Year
  Sex: Male

DRUGS (1)
  1. LIORESAL [Suspect]
     Active Substance: BACLOFEN
     Dosage: 1982 ?G, \DAY
     Route: 037

REACTIONS (4)
  - Excessive granulation tissue [Recovered/Resolved]
  - Device infusion issue [Recovered/Resolved]
  - Drug withdrawal syndrome [Recovered/Resolved]
  - Complication associated with device [Recovered/Resolved]

NARRATIVE: CASE EVENT DATE: 202104
